APPROVED DRUG PRODUCT: MEFLOQUINE HYDROCHLORIDE
Active Ingredient: MEFLOQUINE HYDROCHLORIDE
Strength: 250MG
Dosage Form/Route: TABLET;ORAL
Application: A076392 | Product #001 | TE Code: AB
Applicant: BARR LABORATORIES INC
Approved: Dec 29, 2003 | RLD: No | RS: Yes | Type: RX